FAERS Safety Report 13733418 (Version 1)
Quarter: 2017Q3

REPORT INFORMATION
  Report Type: Spontaneous
  Country: US (occurrence: US)
  Receive Date: 20170707
  Receipt Date: 20170707
  Transmission Date: 20171127
  Serious: Yes (Hospitalization)
  Sender: FDA-Public Use
  Company Number: US-ROCHE-1383691

PATIENT
  Age: 71 Year
  Sex: Male
  Weight: 78.2 kg

DRUGS (7)
  1. ASPIRIN. [Concomitant]
     Active Substance: ASPIRIN
     Indication: PROPHYLAXIS
     Dosage: DAILY
     Route: 048
  2. CHLORAMBUCIL [Suspect]
     Active Substance: CHLORAMBUCIL
     Indication: CHRONIC LYMPHOCYTIC LEUKAEMIA
     Dosage: DAILY X 4 DAYS EVERY OTHER WEEK
     Route: 048
     Dates: start: 20140127, end: 20140305
  3. ATORVASTATIN [Concomitant]
     Active Substance: ATORVASTATIN
     Indication: HYPERLIPIDAEMIA
     Dosage: DAILY
     Route: 048
  4. GAZYVA [Suspect]
     Active Substance: OBINUTUZUMAB
     Indication: CHRONIC LYMPHOCYTIC LEUKAEMIA
     Dosage: DAY 1, 8, 15 FOR C1 THEN D1 EVERY 28 DAYS
     Route: 042
     Dates: start: 20140219, end: 20140305
  5. GAZYVA [Suspect]
     Active Substance: OBINUTUZUMAB
     Dosage: DAY 8 AND DAY 15 (05/MAR/2014)
     Route: 042
  6. GAZYVA [Suspect]
     Active Substance: OBINUTUZUMAB
     Dosage: DAY 2 (20/FEB/2014)
     Route: 042
  7. AMBIEN [Concomitant]
     Active Substance: ZOLPIDEM TARTRATE
     Route: 048

REACTIONS (2)
  - Neutropenia [Recovering/Resolving]
  - Incorrect drug administration rate [Not Recovered/Not Resolved]

NARRATIVE: CASE EVENT DATE: 20140311
